FAERS Safety Report 15613618 (Version 1)
Quarter: 2018Q4

REPORT INFORMATION
  Report Type: Spontaneous
  Country: US (occurrence: US)
  Receive Date: 20181113
  Receipt Date: 20181113
  Transmission Date: 20190205
  Serious: Yes (Hospitalization)
  Sender: FDA-Public Use
  Company Number: US-NOVOPROD-631574

PATIENT

DRUGS (1)
  1. OZEMPIC [Suspect]
     Active Substance: SEMAGLUTIDE
     Indication: TYPE 2 DIABETES MELLITUS
     Dosage: UNK
     Dates: start: 201807

REACTIONS (7)
  - Heart rate irregular [Unknown]
  - Vomiting [Unknown]
  - Dandruff [Unknown]
  - Malaise [Unknown]
  - Dry skin [Unknown]
  - Decreased appetite [Unknown]
  - Diarrhoea [Unknown]

NARRATIVE: CASE EVENT DATE: 2018
